FAERS Safety Report 9333243 (Version 5)
Quarter: 2014Q3

REPORT INFORMATION
  Report Type: Spontaneous
  Country: US (occurrence: US)
  Receive Date: 20130606
  Receipt Date: 20140731
  Transmission Date: 20150326
  Serious: Yes (Hospitalization, Other)
  Sender: FDA-Public Use
  Company Number: US-009507513-1305USA018026

PATIENT
  Sex: Female
  Weight: 79.82 kg

DRUGS (1)
  1. NUVARING [Suspect]
     Active Substance: ETHINYL ESTRADIOL\ETONOGESTREL
     Indication: CONTRACEPTION
     Dosage: UNK
     Route: 067
     Dates: start: 201006, end: 201007

REACTIONS (22)
  - Dyspnoea [Unknown]
  - Pelvic discomfort [Unknown]
  - Hypertension [Unknown]
  - Anaemia of pregnancy [Unknown]
  - Tachycardia [Unknown]
  - Rhinitis allergic [Unknown]
  - Palpitations [Unknown]
  - Stress [Unknown]
  - Urinary tract infection [Unknown]
  - Appendicectomy [Unknown]
  - Chest pain [Unknown]
  - Anxiety [Unknown]
  - Normochromic normocytic anaemia [Unknown]
  - Headache [Recovered/Resolved]
  - Abortion spontaneous [Recovered/Resolved]
  - Pulmonary embolism [Unknown]
  - Thyroid cyst [Unknown]
  - Unintended pregnancy [Recovered/Resolved]
  - Ovarian cyst [Unknown]
  - Acute sinusitis [Unknown]
  - Menstruation irregular [Unknown]
  - Thrombocytopenia [Recovering/Resolving]

NARRATIVE: CASE EVENT DATE: 2010
